FAERS Safety Report 18495349 (Version 1)
Quarter: 2020Q4

REPORT INFORMATION
  Report Type: Spontaneous
  Country: CA (occurrence: CA)
  Receive Date: 20201112
  Receipt Date: 20201112
  Transmission Date: 20210114
  Serious: Yes (Hospitalization, Other)
  Sender: FDA-Public Use
  Company Number: CA-AUROBINDO-AUR-APL-2020-055836

PATIENT
  Age: 48 Year
  Sex: Female
  Weight: 102 kg

DRUGS (2)
  1. AMLODIPINE [Suspect]
     Active Substance: AMLODIPINE BESYLATE
     Indication: PRODUCT USED FOR UNKNOWN INDICATION
     Dosage: 252 MILLIGRAM
     Route: 048
  2. PERINDOPRIL [Suspect]
     Active Substance: PERINDOPRIL
     Indication: PRODUCT USED FOR UNKNOWN INDICATION
     Dosage: 180 MILLIGRAM
     Route: 065

REACTIONS (5)
  - Toxicity to various agents [Recovered/Resolved]
  - Vasoplegia syndrome [Recovered/Resolved]
  - Impaired insulin secretion [Recovered/Resolved]
  - Hypoxia [Recovered/Resolved]
  - Overdose [Recovered/Resolved]
